FAERS Safety Report 17497931 (Version 1)
Quarter: 2020Q1

REPORT INFORMATION
  Report Type: Spontaneous
  Country: US (occurrence: US)
  Receive Date: 20200304
  Receipt Date: 20200304
  Transmission Date: 20200409
  Serious: Yes (Other)
  Sender: FDA-Public Use
  Company Number: NVSC2020US061827

PATIENT
  Age: 67 Year
  Sex: Female

DRUGS (1)
  1. PAZOPANIB [Suspect]
     Active Substance: PAZOPANIB
     Indication: ANGIOSARCOMA METASTATIC
     Dosage: UNK
     Route: 065

REACTIONS (4)
  - Myalgia [Recovering/Resolving]
  - Liver injury [Recovering/Resolving]
  - Jaundice [Recovering/Resolving]
  - Abdominal pain [Recovering/Resolving]
